FAERS Safety Report 12788015 (Version 2)
Quarter: 2016Q4

REPORT INFORMATION
  Report Type: Spontaneous
  Country: US (occurrence: US)
  Receive Date: 20160928
  Receipt Date: 20161006
  Transmission Date: 20170207
  Serious: Yes (Hospitalization)
  Sender: FDA-Public Use
  Company Number: US-MYLANLABS-2016M1041100

PATIENT

DRUGS (14)
  1. GLUCOSAMINE [Concomitant]
     Active Substance: GLUCOSAMINE
     Indication: MUSCLE SPASMS
     Route: 065
  2. DISULFIRAM. [Concomitant]
     Active Substance: DISULFIRAM
     Route: 065
  3. TAMSULOSIN [Concomitant]
     Active Substance: TAMSULOSIN
     Indication: MUSCLE SPASMS
     Route: 065
  4. NAPROXEN. [Suspect]
     Active Substance: NAPROXEN
     Indication: MUSCLE SPASMS
     Route: 065
  5. MULTIVITAMIN                       /00097801/ [Concomitant]
     Active Substance: VITAMINS
     Indication: MUSCLE SPASMS
     Route: 065
  6. TADALAFIL [Concomitant]
     Active Substance: TADALAFIL
     Route: 065
  7. HYDROCHLOROTHIAZIDE. [Suspect]
     Active Substance: HYDROCHLOROTHIAZIDE
     Indication: DYSPEPSIA
     Route: 065
  8. PARACETAMOL [Concomitant]
     Active Substance: ACETAMINOPHEN
     Indication: MUSCLE SPASMS
     Route: 065
  9. CALCIUM CARBONATE. [Suspect]
     Active Substance: CALCIUM CARBONATE
     Indication: DYSPEPSIA
     Route: 048
  10. ACETYLSALICYLIC ACID [Suspect]
     Active Substance: ASPIRIN
     Indication: PRODUCT USED FOR UNKNOWN INDICATION
     Route: 065
  11. AMLODIPINE [Concomitant]
     Active Substance: AMLODIPINE BESYLATE
     Indication: DYSPEPSIA
     Route: 065
  12. OMEGA 3                            /01334101/ [Concomitant]
     Active Substance: OMEGA-3 FATTY ACIDS
     Indication: MUSCLE SPASMS
     Route: 065
  13. IBUPROFEN. [Suspect]
     Active Substance: IBUPROFEN
     Indication: MUSCLE SPASMS
     Route: 065
  14. CYCLOBENZAPRINE [Concomitant]
     Active Substance: CYCLOBENZAPRINE
     Indication: MUSCLE SPASMS
     Route: 065

REACTIONS (3)
  - Milk-alkali syndrome [Unknown]
  - Acute kidney injury [Recovered/Resolved]
  - Hypercalcaemia [Recovered/Resolved]
